FAERS Safety Report 25140896 (Version 1)
Quarter: 2025Q1

REPORT INFORMATION
  Report Type: Report from Study
  Country: CA (occurrence: CA)
  Receive Date: 20250331
  Receipt Date: 20250331
  Transmission Date: 20250408
  Serious: Yes (Other)
  Sender: BAYER HEALTHCARE PHARMACEUTICALS INC.
  Company Number: CA-BAYER-2025A026119

PATIENT
  Age: 54 Year
  Sex: Female

DRUGS (3)
  1. STIVARGA [Suspect]
     Active Substance: REGORAFENIB MONOHYDRATE
     Indication: Colorectal cancer
     Route: 048
     Dates: start: 20241008
  2. STIVARGA [Suspect]
     Active Substance: REGORAFENIB MONOHYDRATE
     Indication: Colorectal cancer
     Dosage: 120 MG, QD
     Route: 048
  3. STIVARGA [Suspect]
     Active Substance: REGORAFENIB MONOHYDRATE
     Indication: Colorectal cancer
     Dosage: 80 MG, QD
     Route: 048

REACTIONS (11)
  - Gait inability [None]
  - Skin disorder [Unknown]
  - Blister [Recovered/Resolved]
  - Skin fissures [Unknown]
  - Hyperkeratosis [Unknown]
  - Chemical burn [Unknown]
  - Loss of personal independence in daily activities [Unknown]
  - Palmar-plantar erythrodysaesthesia syndrome [Unknown]
  - Pustule [None]
  - Skin exfoliation [Unknown]
  - Lacrimation increased [None]
